FAERS Safety Report 12964744 (Version 1)
Quarter: 2016Q4

REPORT INFORMATION
  Report Type: Spontaneous
  Country: US (occurrence: US)
  Receive Date: 20161122
  Receipt Date: 20161122
  Transmission Date: 20170207
  Serious: Yes (Death, Hospitalization)
  Sender: FDA-Public Use
  Company Number: US-INGENUS PHARMACEUTICALS NJ, LLC-ING201611-000115

PATIENT
  Age: 35 Year
  Sex: Male

DRUGS (1)
  1. CARISOPRODOL AND ASPIRIN [Suspect]
     Active Substance: ASPIRIN\CARISOPRODOL

REACTIONS (8)
  - Toxicity to various agents [Fatal]
  - Renal impairment [Unknown]
  - Pulmonary oedema [Fatal]
  - Agitation [Unknown]
  - Overdose [Fatal]
  - Mental status changes [Unknown]
  - Confusional state [Unknown]
  - Hyperhidrosis [Unknown]
